FAERS Safety Report 8202980 (Version 5)
Quarter: 2014Q3

REPORT INFORMATION
  Report Type: Spontaneous
  Country: US (occurrence: US)
  Receive Date: 20111027
  Receipt Date: 20140710
  Transmission Date: 20150326
  Serious: Yes (Hospitalization)
  Sender: FDA-Public Use
  Company Number: US-GLAXOSMITHKLINE-A0906259A

PATIENT
  Sex: Male
  Weight: 134.5 kg

DRUGS (6)
  1. GLYBURIDE. [Concomitant]
     Active Substance: GLYBURIDE
  2. METHOCARBAMOL. [Concomitant]
     Active Substance: METHOCARBAMOL
  3. GLUCOPHAGE [Concomitant]
     Active Substance: METFORMIN HYDROCHLORIDE
  4. ALLOPURINOL. [Concomitant]
     Active Substance: ALLOPURINOL
  5. AVANDIA [Suspect]
     Active Substance: ROSIGLITAZONE MALEATE
     Indication: DIABETES MELLITUS
     Dosage: 4MG PER DAY
     Route: 048
     Dates: start: 20010131, end: 20070919
  6. TOPROL XL [Concomitant]
     Active Substance: METOPROLOL SUCCINATE

REACTIONS (9)
  - Percutaneous coronary intervention [Unknown]
  - Stent placement [Unknown]
  - Cerebrovascular disorder [Unknown]
  - Myocardial ischaemia [Unknown]
  - Cerebrovascular accident [Recovering/Resolving]
  - Hyperlipidaemia [Unknown]
  - Cerebral infarction [Unknown]
  - Cardiac disorder [Unknown]
  - Coronary artery disease [Unknown]
